FAERS Safety Report 13855458 (Version 2)
Quarter: 2017Q3

REPORT INFORMATION
  Report Type: Spontaneous
  Country: JP (occurrence: JP)
  Receive Date: 20170810
  Receipt Date: 20170814
  Transmission Date: 20171127
  Serious: Yes (Death, Hospitalization)
  Sender: FDA-Public Use
  Company Number: JP-JNJFOC-20170808404

PATIENT
  Age: 91 Year
  Sex: Female

DRUGS (2)
  1. RIVAROXABAN [Suspect]
     Active Substance: RIVAROXABAN
     Indication: CEREBROVASCULAR ACCIDENT PROPHYLAXIS
     Route: 048
     Dates: start: 20170713
  2. RIVAROXABAN [Suspect]
     Active Substance: RIVAROXABAN
     Indication: ATRIAL FIBRILLATION
     Route: 048
     Dates: start: 20170713

REACTIONS (6)
  - Erythema [Unknown]
  - Skin oedema [Not Recovered/Not Resolved]
  - Cardiac failure chronic [Fatal]
  - Eyelid oedema [Not Recovered/Not Resolved]
  - Oedema peripheral [Unknown]
  - Haemorrhage subcutaneous [Not Recovered/Not Resolved]

NARRATIVE: CASE EVENT DATE: 20170719
